FAERS Safety Report 23825014 (Version 1)
Quarter: 2024Q2

REPORT INFORMATION
  Report Type: Spontaneous
  Country: US (occurrence: US)
  Receive Date: 20240507
  Receipt Date: 20240507
  Transmission Date: 20240716
  Serious: No
  Sender: FDA-Public Use
  Company Number: US-AJANTA-2024AJA00056

PATIENT
  Age: 69 Year
  Sex: Female
  Weight: 145 kg

DRUGS (7)
  1. CHOLESTYRAMINE [Suspect]
     Active Substance: CHOLESTYRAMINE
     Indication: Abdominal pain upper
     Route: 048
     Dates: start: 202403, end: 20240320
  2. CHOLESTYRAMINE [Suspect]
     Active Substance: CHOLESTYRAMINE
     Indication: Gastrointestinal pain
     Route: 048
     Dates: start: 202403, end: 202403
  3. CHOLESTYRAMINE [Suspect]
     Active Substance: CHOLESTYRAMINE
     Indication: Diarrhoea
  4. CHOLESTYRAMINE [Suspect]
     Active Substance: CHOLESTYRAMINE
     Indication: Anal incontinence
  5. OMEPRAZOLE MAGNESIUM [Concomitant]
     Active Substance: OMEPRAZOLE MAGNESIUM
  6. PROGESTERONE [Concomitant]
     Active Substance: PROGESTERONE
  7. ESTRADIOL [Concomitant]
     Active Substance: ESTRADIOL

REACTIONS (6)
  - Decreased appetite [Unknown]
  - Product substitution issue [Unknown]
  - Product solubility abnormal [Unknown]
  - Product formulation issue [Unknown]
  - Inappropriate schedule of product administration [Unknown]
  - Drug ineffective for unapproved indication [Unknown]

NARRATIVE: CASE EVENT DATE: 20240301
